FAERS Safety Report 8366531-7 (Version None)
Quarter: 2012Q2

REPORT INFORMATION
  Report Type: 
  Country: None (occurrence: None)
  Receive Date: 20120517
  Receipt Date: 20120509
  Transmission Date: 20120825
  Serious: Yes (Hospitalization)
  Sender: FDA-Public Use
  Company Number: PHHY2012FR040217

PATIENT
  Age: 76 Year
  Sex: Female

DRUGS (2)
  1. RASILEZ HCT [Suspect]
     Indication: DYSPNOEA
  2. RASILEZ HCT [Suspect]
     Indication: HYPERTENSION
     Dosage: 1 DF, DAILY
     Dates: start: 20120112, end: 20120212

REACTIONS (15)
  - SUBARACHNOID HAEMORRHAGE [None]
  - BRAIN OEDEMA [None]
  - FALL [None]
  - DIZZINESS [None]
  - MALAISE [None]
  - ASTHENIA [None]
  - HYPONATRAEMIA [None]
  - HYPOKINESIA [None]
  - CEREBRAL HAEMATOMA [None]
  - CRANIOCEREBRAL INJURY [None]
  - VOMITING [None]
  - FATIGUE [None]
  - PARALYSIS [None]
  - LOSS OF CONSCIOUSNESS [None]
  - CONFUSIONAL STATE [None]
